FAERS Safety Report 20357618 (Version 1)
Quarter: 2022Q1

REPORT INFORMATION
  Report Type: Spontaneous
  Country: US (occurrence: None)
  Receive Date: 20220120
  Receipt Date: 20220120
  Transmission Date: 20220423
  Serious: No
  Sender: FDA-Public Use
  Company Number: None

PATIENT
  Age: 56 Year
  Sex: Female
  Weight: 78.7 kg

DRUGS (2)
  1. EVUSHELD [Suspect]
     Active Substance: CILGAVIMAB\TIXAGEVIMAB
     Indication: COVID-19 prophylaxis
     Dosage: 300MG ONCE INTRAMUSCULAR?
     Route: 030
     Dates: start: 20220114, end: 20220114
  2. EVUSHELD [Suspect]
     Active Substance: CILGAVIMAB\TIXAGEVIMAB
     Dosage: 300 MGONCE;?
     Route: 030
     Dates: start: 20220114, end: 20220114

REACTIONS (6)
  - Extra dose administered [None]
  - Wrong technique in product usage process [None]
  - Physical product label issue [None]
  - Product dispensing error [None]
  - Product monitoring error [None]
  - Product barcode issue [None]

NARRATIVE: CASE EVENT DATE: 20220114
